FAERS Safety Report 21481708 (Version 2)
Quarter: 2022Q4

REPORT INFORMATION
  Report Type: Spontaneous
  Country: US (occurrence: None)
  Receive Date: 20221020
  Receipt Date: 20221123
  Transmission Date: 20230113
  Serious: No
  Sender: FDA-Public Use
  Company Number: 2022A325254

PATIENT
  Age: 60 Year
  Sex: Female
  Weight: 82.6 kg

DRUGS (1)
  1. SYMLIN [Suspect]
     Active Substance: PRAMLINTIDE ACETATE
     Indication: Type 2 diabetes mellitus
     Route: 058
     Dates: start: 2008

REACTIONS (10)
  - Hypoglycaemia [Unknown]
  - Nausea [Recovered/Resolved]
  - Rash [Recovered/Resolved]
  - Bacterial infection [Recovered/Resolved]
  - Erythema [Recovered/Resolved]
  - Pruritus [Recovered/Resolved]
  - Drug hypersensitivity [Recovered/Resolved]
  - Blood glucose increased [Unknown]
  - Injection site haemorrhage [Unknown]
  - Device delivery system issue [Unknown]

NARRATIVE: CASE EVENT DATE: 20080101
